FAERS Safety Report 11018744 (Version 2)
Quarter: 2015Q2

REPORT INFORMATION
  Report Type: Spontaneous
  Country: US (occurrence: US)
  Receive Date: 20150412
  Receipt Date: 20150524
  Transmission Date: 20150821
  Serious: Yes (Other)
  Sender: FDA-Public Use
  Company Number: US-JNJFOC-20120610739

PATIENT

DRUGS (33)
  1. PREDNISONE. [Suspect]
     Active Substance: PREDNISONE
     Indication: BURKITT^S LEUKAEMIA
     Dosage: FOR 7 DAYS IN CYCLE 1
     Route: 065
  2. METHOTREXATE [Suspect]
     Active Substance: METHOTREXATE
     Indication: BURKITT^S LYMPHOMA
     Dosage: ON DAY 1 OF CYCLE 3,5 AND 7
     Route: 042
  3. METHOTREXATE [Suspect]
     Active Substance: METHOTREXATE
     Indication: BURKITT^S LEUKAEMIA
     Dosage: ON DAY 1 OF CYCLE 3,5 AND 7
     Route: 042
  4. RITUXIMAB [Suspect]
     Active Substance: RITUXIMAB
     Indication: BURKITT^S LYMPHOMA
     Dosage: DAY 8 ON CYCLE 2; DOAGE INCREASED TO 375 MG/M2 ON DAY 10 AND 12
     Route: 042
  5. FILGRASTIM [Concomitant]
     Active Substance: FILGRASTIM
     Indication: PROPHYLAXIS
     Dosage: 5 MICROGRAM/KG/DAY FROM DAY 7 OF EACH CYCLE UNTIL THE ABSOLUTE NEUTROPHIL COUNT HAD RECOVERED
     Route: 058
  6. DOXORUBICIN [Suspect]
     Active Substance: DOXORUBICIN
     Indication: BURKITT^S LEUKAEMIA
     Dosage: ON DAYS 4 AND 5 OF CYCLE 3,5 AND 7
     Route: 042
  7. IFOSFAMIDE. [Suspect]
     Active Substance: IFOSFAMIDE
     Indication: BURKITT^S LYMPHOMA
     Dosage: ON DAYS 1-5 IN CYCLE 2,4 AND 6
     Route: 042
  8. VP-16 [Suspect]
     Active Substance: ETOPOSIDE
     Indication: BURKITT^S LYMPHOMA
     Dosage: ON DAYS 4 AND 5 OF CYCLE 2,4 AND 6
     Route: 042
  9. VP-16 [Suspect]
     Active Substance: ETOPOSIDE
     Indication: BURKITT^S LEUKAEMIA
     Dosage: ON DAYS 4 AND 5 OF CYCLE 2,4 AND 6
     Route: 042
  10. DEXAMETHASONE. [Suspect]
     Active Substance: DEXAMETHASONE
     Indication: BURKITT^S LYMPHOMA
     Dosage: ON DAYS 1-5 OF CYCLE 3,5 AND 7
     Route: 042
  11. CYCLOPHOSPHAMIDE. [Suspect]
     Active Substance: CYCLOPHOSPHAMIDE
     Indication: BURKITT^S LYMPHOMA
     Dosage: DAYS 1-5 DURING CYCLE 3,5 AND 7
     Route: 042
  12. RITUXIMAB [Suspect]
     Active Substance: RITUXIMAB
     Indication: BURKITT^S LEUKAEMIA
     Dosage: DAY 8 ON CYCLE 2; DOAGE INCREASED TO 375 MG/M2 ON DAY 10 AND 12
     Route: 042
  13. DOXORUBICIN [Suspect]
     Active Substance: DOXORUBICIN
     Indication: BURKITT^S LYMPHOMA
     Dosage: ON DAYS 4 AND 5 OF CYCLE 3,5 AND 7
     Route: 042
  14. CYCLOPHOSPHAMIDE. [Suspect]
     Active Substance: CYCLOPHOSPHAMIDE
     Indication: BURKITT^S LEUKAEMIA
     Dosage: DAYS 1-5 DURING CYCLE 3,5 AND 7
     Route: 042
  15. CYCLOPHOSPHAMIDE. [Suspect]
     Active Substance: CYCLOPHOSPHAMIDE
     Indication: BURKITT^S LEUKAEMIA
     Dosage: FOR 5 DAYS IN CYCLE 1
     Route: 042
  16. VINCRISTINE [Suspect]
     Active Substance: VINCRISTINE
     Indication: BURKITT^S LYMPHOMA
     Dosage: ON DAY 1 OF CYCLE 2,4 AND 6
     Route: 042
  17. DEXAMETHASONE. [Suspect]
     Active Substance: DEXAMETHASONE
     Indication: BURKITT^S LEUKAEMIA
     Dosage: ON DAYS 1-5 OF CYCLE 3,5 AND 7
     Route: 042
  18. RITUXIMAB [Suspect]
     Active Substance: RITUXIMAB
     Indication: BURKITT^S LYMPHOMA
     Dosage: ON DAY 8 FROM CYCLE 3 TO 7
     Route: 042
  19. LEUCOVORIN [Concomitant]
     Active Substance: LEUCOVORIN
     Indication: PROPHYLAXIS
     Dosage: 50 MG/M2 36 HOURS AFTER INITIATION OF METHOTREXATE, THEN 10 MG/M2 EVERY 6 H UNTIL LEVEL {0.05 LMOL/L
     Route: 042
  20. LEUCOVORIN [Concomitant]
     Active Substance: LEUCOVORIN
     Indication: PROPHYLAXIS
     Dosage: 50 MG/M2 36 HOURS AFTER INITIATION OF METHOTREXATE, THEN 10 MG/M2 EVERY 6 H UNTIL LEVEL {0.05 LMOL/L
     Route: 042
  21. CYCLOPHOSPHAMIDE. [Suspect]
     Active Substance: CYCLOPHOSPHAMIDE
     Indication: BURKITT^S LYMPHOMA
     Dosage: FOR 5 DAYS IN CYCLE 1
     Route: 042
  22. METHOTREXATE [Suspect]
     Active Substance: METHOTREXATE
     Indication: BURKITT^S LEUKAEMIA
     Dosage: ON DAY 1 OF CYCLE 2,4 AND 6
     Route: 042
  23. VINCRISTINE [Suspect]
     Active Substance: VINCRISTINE
     Indication: BURKITT^S LEUKAEMIA
     Dosage: ON DAY 1 OF CYCLE 3,5 AND 7
     Route: 042
  24. PREDNISONE. [Suspect]
     Active Substance: PREDNISONE
     Indication: BURKITT^S LYMPHOMA
     Dosage: FOR 7 DAYS IN CYCLE 1
     Route: 065
  25. IFOSFAMIDE. [Suspect]
     Active Substance: IFOSFAMIDE
     Indication: BURKITT^S LEUKAEMIA
     Dosage: ON DAYS 1-5 IN CYCLE 2,4 AND 6
     Route: 042
  26. VINCRISTINE [Suspect]
     Active Substance: VINCRISTINE
     Indication: BURKITT^S LYMPHOMA
     Dosage: ON DAY 1 OF CYCLE 3,5 AND 7
     Route: 042
  27. ARA-C [Suspect]
     Active Substance: CYTARABINE
     Indication: BURKITT^S LYMPHOMA
     Dosage: ON DAYS 4 AND 5 OF CYCLE 2,4 AND 6
     Route: 042
  28. ARA-C [Suspect]
     Active Substance: CYTARABINE
     Indication: BURKITT^S LEUKAEMIA
     Dosage: ON DAYS 4 AND 5 OF CYCLE 2,4 AND 6
     Route: 042
  29. DEXAMETHASONE. [Suspect]
     Active Substance: DEXAMETHASONE
     Indication: BURKITT^S LYMPHOMA
     Dosage: ON DAYS 1-5 OF CYCLE 2,4 AND 6
     Route: 042
  30. METHOTREXATE [Suspect]
     Active Substance: METHOTREXATE
     Indication: BURKITT^S LYMPHOMA
     Dosage: ON DAY 1 OF CYCLE 2,4 AND 6
     Route: 042
  31. VINCRISTINE [Suspect]
     Active Substance: VINCRISTINE
     Indication: BURKITT^S LEUKAEMIA
     Dosage: ON DAY 1 OF CYCLE 2,4 AND 6
     Route: 042
  32. DEXAMETHASONE. [Suspect]
     Active Substance: DEXAMETHASONE
     Indication: BURKITT^S LEUKAEMIA
     Dosage: ON DAYS 1-5 OF CYCLE 2,4 AND 6
     Route: 042
  33. RITUXIMAB [Suspect]
     Active Substance: RITUXIMAB
     Indication: BURKITT^S LEUKAEMIA
     Dosage: ON DAY 8 FROM CYCLE 3 TO 7
     Route: 042

REACTIONS (1)
  - Condition aggravated [Unknown]
